FAERS Safety Report 4324253-3 (Version None)
Quarter: 2004Q1

REPORT INFORMATION
  Report Type: 
  Country: None (occurrence: None)
  Receive Date: 20040326
  Receipt Date: 20040115
  Transmission Date: 20041129
  Serious: No
  Sender: FDA-Public Use
  Company Number: US-GLAXOSMITHKLINE-A0493478A

PATIENT
  Age: 61 Year
  Sex: Female

DRUGS (8)
  1. ADVAIR DISKUS 100/50 [Suspect]
     Indication: ASTHMA
     Dosage: 1PUFF PER DAY
     Route: 055
     Dates: start: 20031001, end: 20040101
  2. THYROID MEDICATION [Concomitant]
  3. ZOLOFT [Concomitant]
  4. HRT [Concomitant]
  5. PREVACID [Concomitant]
  6. ALBUTEROL [Concomitant]
  7. COUGH SYRUP [Concomitant]
  8. ALLERGY MEDICATION [Concomitant]

REACTIONS (2)
  - COUGH [None]
  - DRUG INEFFECTIVE [None]
